FAERS Safety Report 5202897-4 (Version None)
Quarter: 2006Q4

REPORT INFORMATION
  Report Type: 
  Country: None (occurrence: None)
  Receive Date: 20061016
  Receipt Date: 20060405
  Transmission Date: 20070319
  Serious: Yes (Other)
  Sender: FDA-Public Use
  Company Number: 2006031820

PATIENT
  Age: 50 Year
  Sex: Male

DRUGS (14)
  1. NEURONTIN [Suspect]
     Indication: ILL-DEFINED DISORDER
  2. BUPROPION HCL [Concomitant]
  3. BUSPIRONE HCL [Concomitant]
  4. CYCLOBENZAPRINE HCL [Concomitant]
  5. DIVALPROEX (VALPROIC ACID) [Concomitant]
  6. DOXEPIN HCL [Concomitant]
  7. FELODIPINE [Concomitant]
  8. GEMFIBROZIL [Concomitant]
  9. GLIPIZIDE [Concomitant]
  10. HYDROCHLOROTHIAZIDE WITH TRIAMTERENE (HYDROCHLOROTHIAZIDE, TRIAMTERENE [Concomitant]
  11. SERTRALINE [Concomitant]
  12. SILDENAFIL CITRATE [Concomitant]
  13. TEMAZEPAM [Concomitant]
  14. ZIPRASIDONE HCL [Concomitant]

REACTIONS (1)
  - SUICIDAL IDEATION [None]
